FAERS Safety Report 16770458 (Version 1)
Quarter: 2019Q3

REPORT INFORMATION
  Report Type: Spontaneous
  Country: US (occurrence: US)
  Receive Date: 20190904
  Receipt Date: 20190904
  Transmission Date: 20191005
  Serious: No
  Sender: FDA-Public Use
  Company Number: US-009507513-1908USA005926

PATIENT
  Age: 88 Year
  Sex: Female
  Weight: 59.55 kg

DRUGS (1)
  1. PROVENTIL [Suspect]
     Active Substance: ALBUTEROL
     Indication: DYSPNOEA
     Dosage: 1 PUFF 4 TIMES A DAY, AS NEEDED (PRN)
     Route: 055
     Dates: start: 20190808

REACTIONS (5)
  - Poor quality device used [Unknown]
  - Product use in unapproved indication [Unknown]
  - Product use issue [Unknown]
  - Product quality issue [Unknown]
  - Product dose omission [Unknown]

NARRATIVE: CASE EVENT DATE: 20190808
